APPROVED DRUG PRODUCT: NIZORAL ANTI-DANDRUFF
Active Ingredient: KETOCONAZOLE
Strength: 1%
Dosage Form/Route: SHAMPOO;TOPICAL
Application: N020310 | Product #001
Applicant: KRAMER LABORATORIES INC
Approved: Oct 10, 1997 | RLD: Yes | RS: Yes | Type: OTC